FAERS Safety Report 7796315-X (Version None)
Quarter: 2011Q4

REPORT INFORMATION
  Report Type: 
  Country: None (occurrence: None)
  Receive Date: 20111005
  Receipt Date: 20110930
  Transmission Date: 20120403
  Serious: Yes (Hospitalization)
  Sender: FDA-Public Use
  Company Number: US-BIOGENIDEC-2011BI022374

PATIENT
  Age: 52 Year
  Sex: Female

DRUGS (10)
  1. TYSABRI [Suspect]
     Indication: MULTIPLE SCLEROSIS
     Route: 042
     Dates: start: 20080116
  2. ESTRADIOL [Concomitant]
     Route: 048
  3. FLUOXETINE [Concomitant]
     Route: 048
  4. AMPYRA [Concomitant]
     Route: 048
  5. PHENAZOPYRIDINE HCL TAB [Concomitant]
     Route: 048
  6. BACLOFEN [Concomitant]
     Route: 048
  7. TIZANIDINE HCL [Concomitant]
     Route: 048
  8. CALCIUM 600 PLUS D [Concomitant]
     Route: 048
  9. PROZAC [Concomitant]
     Route: 048
  10. SIMVASTATIN [Concomitant]
     Route: 048

REACTIONS (4)
  - ESCHERICHIA URINARY TRACT INFECTION [None]
  - DEVICE RELATED INFECTION [None]
  - PRESYNCOPE [None]
  - MULTIPLE SCLEROSIS RELAPSE [None]
